FAERS Safety Report 4415573-2 (Version None)
Quarter: 2004Q3

REPORT INFORMATION
  Report Type: 
  Country: None (occurrence: None)
  Receive Date: 20040730
  Receipt Date: 20040407
  Transmission Date: 20050211
  Serious: Yes (Death, Life-Threatening, Hospitalization)
  Sender: FDA-Public Use
  Company Number: F01200400725

PATIENT
  Age: 79 Year
  Sex: Male

DRUGS (6)
  1. (OXALIPLATIN) - SOLUTION - 30 MG/M2 [Suspect]
     Indication: COLON CANCER
     Dosage: 30 MG/M2 Q3W, INTRAVENOUS NOS
     Route: 042
     Dates: start: 20040304, end: 20040304
  2. (OXALIPLATIN) - SOLUTION - 30 MG/M2 [Suspect]
     Indication: THERAPEUTIC PROCEDURE
     Dosage: 30 MG/M2 Q3W, INTRAVENOUS NOS
     Route: 042
     Dates: start: 20040304, end: 20040304
  3. (CAPECITABINE) - TABLET - 200 MG [Suspect]
     Dosage: 200 MG TWICE A DAY PER ORAL FROM D1 TO D15
     Route: 048
  4. ZOFRAN [Concomitant]
  5. DECADRON [Concomitant]
  6. IMODIUM [Concomitant]

REACTIONS (5)
  - ATRIAL FIBRILLATION [None]
  - DEHYDRATION [None]
  - ENTERITIS [None]
  - INTESTINAL ISCHAEMIA [None]
  - RENAL FAILURE ACUTE [None]
